FAERS Safety Report 4841009-3 (Version None)
Quarter: 2005Q4

REPORT INFORMATION
  Report Type: 
  Country: None (occurrence: None)
  Receive Date: 20051130
  Receipt Date: 20050823
  Transmission Date: 20060501
  Serious: No
  Sender: FDA-Public Use
  Company Number: US-BRISTOL-MYERS SQUIBB COMPANY-13087713

PATIENT
  Sex: Female
  Weight: 91 kg

DRUGS (5)
  1. ABILIFY [Suspect]
     Dosage: DOSAGE: REDUCED TO 2.5 MG DAILY FOR 6 DAYS
     Route: 048
     Dates: start: 20050601
  2. DIAZEPAM [Concomitant]
  3. ALLEGRA [Concomitant]
  4. AXID [Concomitant]
  5. GLYBURIDE [Concomitant]

REACTIONS (3)
  - ASTHENIA [None]
  - FATIGUE [None]
  - INSOMNIA [None]
